FAERS Safety Report 8791396 (Version 1)
Quarter: 2012Q4

REPORT INFORMATION
  Report Type: Spontaneous
  Country: US (occurrence: None)
  Receive Date: 20120914
  Receipt Date: 20120914
  Transmission Date: 20130627
  Serious: No
  Sender: FDA-Public Use
  Company Number: None

PATIENT
  Age: 74 Year
  Sex: Female
  Weight: 57.15 kg

DRUGS (2)
  1. TRIMETHOPRIM [Suspect]
     Indication: BLADDER INFECTION
     Dosage: 1 tab 2x day
     Dates: start: 20120823, end: 20120827
  2. TRIMETHOPRIM [Suspect]
     Indication: BLADDER INFECTION

REACTIONS (1)
  - Abdominal pain upper [None]
